FAERS Safety Report 5305788-3 (Version None)
Quarter: 2007Q2

REPORT INFORMATION
  Report Type: 
  Country: None (occurrence: None)
  Receive Date: 20070424
  Receipt Date: 20070410
  Transmission Date: 20071010
  Serious: Yes (Other)
  Sender: FDA-Public Use
  Company Number: CA-GENENTECH-235433

PATIENT
  Sex: Male
  Weight: 91.5 kg

DRUGS (3)
  1. XOLAIR [Suspect]
     Indication: ASTHMA
     Dosage: 300 MG, UNK
     Route: 058
     Dates: start: 20050930
  2. ADVAIR DISKUS 100/50 [Concomitant]
     Indication: ASTHMA
  3. SALBUTAMOL [Concomitant]
     Indication: ASTHMA

REACTIONS (3)
  - HYPERSENSITIVITY [None]
  - RASH [None]
  - VIRAL INFECTION [None]
